FAERS Safety Report 8455945-2 (Version None)
Quarter: 2012Q2

REPORT INFORMATION
  Report Type: 
  Country: None (occurrence: None)
  Receive Date: 20120621
  Receipt Date: 20120612
  Transmission Date: 20120825
  Serious: Yes (Death, Other)
  Sender: FDA-Public Use
  Company Number: CA-ROCHE-1037283

PATIENT
  Sex: Male
  Weight: 75.364 kg

DRUGS (10)
  1. SENOKOT [Concomitant]
  2. METHYLPREDNISOLONE [Concomitant]
     Route: 042
     Dates: start: 20120120, end: 20120120
  3. COLACE [Concomitant]
  4. ACETAMINOPHEN [Concomitant]
  5. AVASTIN [Suspect]
     Indication: GLIOBLASTOMA
     Route: 042
     Dates: start: 20110801, end: 20120510
  6. PANTOPRAZOLE [Concomitant]
  7. ATIVAN [Concomitant]
  8. DEXAMETHASONE SODIUM POSPHATE [Concomitant]
  9. ZOPICLONE [Concomitant]
  10. OLANZAPINE [Concomitant]

REACTIONS (2)
  - DISEASE PROGRESSION [None]
  - APHASIA [None]
